FAERS Safety Report 5167426-2 (Version None)
Quarter: 2006Q4

REPORT INFORMATION
  Report Type: 
  Country: None (occurrence: None)
  Receive Date: 20061130
  Receipt Date: 20061117
  Transmission Date: 20070319
  Serious: Yes (Other)
  Sender: FDA-Public Use
  Company Number: 2006145415

PATIENT
  Age: 43 Year
  Sex: Female

DRUGS (3)
  1. NEURONTIN [Suspect]
     Indication: SCIATICA
     Dosage: 900 MG (300 MG, 3 IN 1 D), ORAL
     Route: 048
     Dates: start: 20061001, end: 20061119
  2. KATADOLON (FLUPIRTINE MALEATE) [Suspect]
     Indication: SCIATICA
     Dosage: 300 MG (100 MG, 3 IN 1 D), ORAL
     Route: 048
     Dates: start: 20061001, end: 20061117
  3. ANALGESICS (ANALGESICS) [Concomitant]

REACTIONS (3)
  - ALANINE AMINOTRANSFERASE INCREASED [None]
  - BLOOD ALKALINE PHOSPHATASE INCREASED [None]
  - GAMMA-GLUTAMYLTRANSFERASE INCREASED [None]
